FAERS Safety Report 15916167 (Version 4)
Quarter: 2019Q1

REPORT INFORMATION
  Report Type: Spontaneous
  Country: PL (occurrence: PL)
  Receive Date: 20190204
  Receipt Date: 20190211
  Transmission Date: 20190417
  Serious: Yes (Other)
  Sender: FDA-Public Use
  Company Number: PHHY2019PL022549

PATIENT
  Age: 69 Year
  Sex: Female

DRUGS (6)
  1. PACLITAXEL. [Suspect]
     Active Substance: PACLITAXEL
     Indication: BREAST CANCER
     Dosage: 85 MG/M2, UNK (12 CYCLES EVERY 7 DAYS)
     Route: 065
  2. DOCETAXEL. [Suspect]
     Active Substance: DOCETAXEL
     Indication: BREAST CANCER
     Dosage: 100 MG/M2, UNK (4 CYCLES)
     Route: 065
  3. LETROZOLE. [Suspect]
     Active Substance: LETROZOLE
     Indication: BREAST CANCER
     Route: 065
  4. FULVESTRANT. [Suspect]
     Active Substance: FULVESTRANT
     Indication: BREAST CANCER
     Dosage: 400 MG, UNK (EVERY 14, THEN 28 DAYS)
     Route: 065
  5. VINORELBINE [Suspect]
     Active Substance: VINORELBINE\VINORELBINE TARTRATE
     Indication: BREAST CANCER
     Dosage: 50 MG, Q3W
     Route: 048
  6. TAMOXIFEN [Suspect]
     Active Substance: TAMOXIFEN
     Indication: BREAST CANCER
     Dosage: 20 MG, QD
     Route: 065

REACTIONS (18)
  - Oedema peripheral [Unknown]
  - Vomiting [Unknown]
  - Weight increased [Recovering/Resolving]
  - Anaemia [Unknown]
  - Metastases to lymph nodes [Unknown]
  - Pain [Recovering/Resolving]
  - Pathological fracture [Unknown]
  - Metastases to spine [Unknown]
  - Metastases to lung [Unknown]
  - Malignant neoplasm progression [Unknown]
  - Fatigue [Unknown]
  - Weight decreased [Unknown]
  - Granulocytopenia [Unknown]
  - Dyspnoea [Unknown]
  - Asthenia [Unknown]
  - Nausea [Unknown]
  - Breast cancer [Unknown]
  - Metastases to liver [Unknown]
